FAERS Safety Report 17263100 (Version 1)
Quarter: 2019Q4

REPORT INFORMATION
  Report Type: Spontaneous
  Country: US (occurrence: US)
  Receive Date: 20191218
  Receipt Date: 20191218
  Transmission Date: 20200122
  Serious: No
  Sender: FDA-Public Use
  Company Number: None

PATIENT

DRUGS (1)
  1. CREST 3D WHITE GLAMOROUS MOUTHWASH [HYDROGEN PEROXIDE] [Suspect]
     Active Substance: HYDROGEN PEROXIDE

REACTIONS (7)
  - Gastrointestinal disorder [None]
  - Feeling jittery [None]
  - Throat irritation [None]
  - Retching [None]
  - Gastrooesophageal reflux disease [None]
  - Accidental exposure to product [None]
  - Abdominal discomfort [None]

NARRATIVE: CASE EVENT DATE: 20191210
